FAERS Safety Report 12368341 (Version 3)
Quarter: 2016Q2

REPORT INFORMATION
  Report Type: Report from Study
  Country: US (occurrence: US)
  Receive Date: 20160513
  Receipt Date: 20160526
  Transmission Date: 20160815
  Serious: Yes (Hospitalization, Other)
  Sender: FDA-Public Use
  Company Number: US-PURDUE PHARMA-USA-2016-0130796

PATIENT
  Age: 57 Year
  Sex: Male

DRUGS (3)
  1. OXYCONTIN [Suspect]
     Active Substance: OXYCODONE HYDROCHLORIDE
     Indication: NEUROPATHY PERIPHERAL
     Dosage: 80 MG, AM
     Route: 048
     Dates: start: 20160407
  2. OXYCONTIN [Suspect]
     Active Substance: OXYCODONE HYDROCHLORIDE
     Indication: SPINAL COLUMN STENOSIS
     Dosage: (2) 80 MG, HS
     Route: 048
     Dates: start: 20160407
  3. OXYCONTIN [Suspect]
     Active Substance: OXYCODONE HYDROCHLORIDE
     Indication: LIMB INJURY
     Dosage: UNK
     Route: 048
     Dates: start: 201311

REACTIONS (4)
  - Patella fracture [Not Recovered/Not Resolved]
  - Lower limb fracture [Recovering/Resolving]
  - Injury [Unknown]
  - Ligament injury [Recovering/Resolving]

NARRATIVE: CASE EVENT DATE: 20160506
